FAERS Safety Report 18169795 (Version 1)
Quarter: 2020Q3

REPORT INFORMATION
  Report Type: Spontaneous
  Country: CA (occurrence: CA)
  Receive Date: 20200819
  Receipt Date: 20200819
  Transmission Date: 20201103
  Serious: Yes (Hospitalization)
  Sender: FDA-Public Use
  Company Number: CA-ACCORD-195887

PATIENT
  Sex: Female

DRUGS (13)
  1. DIGOXIN. [Concomitant]
     Active Substance: DIGOXIN
  2. ELIQUIS [Concomitant]
     Active Substance: APIXABAN
  3. HUMIRA [Suspect]
     Active Substance: ADALIMUMAB
     Indication: RHEUMATOID ARTHRITIS
     Route: 058
  4. BISOPROLOL [Concomitant]
     Active Substance: BISOPROLOL
  5. SYNTHROID [Concomitant]
     Active Substance: LEVOTHYROXINE SODIUM
  6. DULOXETINE. [Concomitant]
     Active Substance: DULOXETINE
  7. ZOPICLONE [Concomitant]
     Active Substance: ZOPICLONE
  8. METHOTREXATE. [Suspect]
     Active Substance: METHOTREXATE
     Indication: PRODUCT USED FOR UNKNOWN INDICATION
     Dosage: FREQUENCY: 1 EVERY 1 WEEKS
     Route: 058
  9. XELJANZ [Suspect]
     Active Substance: TOFACITINIB CITRATE
     Indication: RHEUMATOID ARTHRITIS
     Dosage: FREQUENCY: 2 EVERY 1 DAYS
     Route: 048
  10. PREDNISONE. [Concomitant]
     Active Substance: PREDNISONE
     Dosage: FREQUENCY: 1 EVERY 1 DAYS
  11. PANTOLOC [Concomitant]
     Active Substance: PANTOPRAZOLE SODIUM
  12. CANNABIS SATIVA [Concomitant]
     Active Substance: CANNABIS SATIVA FLOWERING TOP
     Indication: PAIN
  13. MIRTAZAPINE. [Concomitant]
     Active Substance: MIRTAZAPINE

REACTIONS (8)
  - Anxiety [Unknown]
  - Arthralgia [Unknown]
  - Memory impairment [Unknown]
  - Confusional state [Unknown]
  - Dehydration [Unknown]
  - Infection [Unknown]
  - Clostridium difficile infection [Unknown]
  - Depression [Unknown]
